FAERS Safety Report 21209496 (Version 2)
Quarter: 2022Q3

REPORT INFORMATION
  Report Type: Spontaneous
  Country: US (occurrence: US)
  Receive Date: 20220813
  Receipt Date: 20220822
  Transmission Date: 20221026
  Serious: No
  Sender: FDA-Public Use
  Company Number: US-LUPIN PHARMACEUTICALS INC.-2022-10133

PATIENT
  Sex: Female
  Weight: 64.399 kg

DRUGS (3)
  1. LOSARTAN POTASSIUM AND HYDROCHLOROTHIAZIDE [Suspect]
     Active Substance: HYDROCHLOROTHIAZIDE\LOSARTAN POTASSIUM
     Indication: Blood pressure abnormal
     Dosage: 1 TABLET ONE TIME A DAY
     Route: 048
     Dates: start: 202110, end: 20220727
  2. LOSARTAN POTASSIUM AND HYDROCHLOROTHIAZIDE [Suspect]
     Active Substance: HYDROCHLOROTHIAZIDE\LOSARTAN POTASSIUM
     Dosage: 1 TABLET ONE TIME A DAY
     Route: 048
     Dates: start: 202110, end: 20220727
  3. AMLODIPINE [Concomitant]
     Active Substance: AMLODIPINE BESYLATE
     Indication: Blood pressure abnormal
     Dosage: 5 MG (1 TABLET ONCE A DAY)
     Route: 048

REACTIONS (3)
  - Abdominal discomfort [Recovered/Resolved]
  - Poor quality product administered [Unknown]
  - Recalled product administered [Unknown]
